FAERS Safety Report 6664503-1 (Version None)
Quarter: 2010Q2

REPORT INFORMATION
  Report Type: 
  Country: None (occurrence: None)
  Receive Date: 20100401
  Receipt Date: 20100329
  Transmission Date: 20101027
  Serious: Yes (Hospitalization)
  Sender: FDA-Public Use
  Company Number: US-GILEAD-2010-0028127

PATIENT
  Sex: Female
  Weight: 85.806 kg

DRUGS (19)
  1. LETAIRIS [Suspect]
     Indication: PULMONARY ARTERIAL HYPERTENSION
     Route: 048
     Dates: start: 20080226
  2. PLAVIX [Concomitant]
  3. LASIX [Concomitant]
  4. COZAAR [Concomitant]
  5. ISOSORBIDE DINITRATE [Concomitant]
  6. NITROSTAT [Concomitant]
  7. REQUIP [Concomitant]
  8. PREDNISONE TAB [Concomitant]
  9. SIMVASTATIN [Concomitant]
  10. ACETAMINOPHEN [Concomitant]
  11. PROAIR HFA [Concomitant]
  12. SEREVENT [Concomitant]
  13. SPIRIVA [Concomitant]
  14. LEVOTHROID [Concomitant]
  15. FLUOXETINE [Concomitant]
  16. K-DUR [Concomitant]
  17. VITAMIN D [Concomitant]
  18. CALCIUM [Concomitant]
  19. MULTI-VITAMIN [Concomitant]

REACTIONS (1)
  - CHRONIC OBSTRUCTIVE PULMONARY DISEASE [None]
